FAERS Safety Report 19900683 (Version 2)
Quarter: 2021Q4

REPORT INFORMATION
  Report Type: Spontaneous
  Country: DE (occurrence: DE)
  Receive Date: 20210929
  Receipt Date: 20211006
  Transmission Date: 20220304
  Serious: Yes (Other)
  Sender: FDA-Public Use
  Company Number: DE-GILEAD-2021-0550326

PATIENT
  Sex: Female

DRUGS (1)
  1. YESCARTA [Suspect]
     Active Substance: AXICABTAGENE CILOLEUCEL
     Indication: Diffuse large B-cell lymphoma
     Dosage: 0.4 X10*8 CELLS
     Route: 042
     Dates: start: 20210715

REACTIONS (4)
  - Unresponsive to stimuli [Unknown]
  - Endotracheal intubation [Unknown]
  - Immune effector cell-associated neurotoxicity syndrome [Unknown]
  - Seizure [Unknown]
